FAERS Safety Report 4920919-2 (Version None)
Quarter: 2006Q1

REPORT INFORMATION
  Report Type: 
  Country: None (occurrence: None)
  Receive Date: 20060217
  Receipt Date: 20060215
  Transmission Date: 20060701
  Serious: Yes (Other)
  Sender: FDA-Public Use
  Company Number: 200610499GDS

PATIENT
  Age: 75 Year
  Sex: Female

DRUGS (4)
  1. CIPRO [Suspect]
     Dosage: 500 MG, TOTAL DAILY, ORAL
     Route: 048
  2. ASPIRIN [Concomitant]
  3. DIDROCAL [Concomitant]
  4. PLAVIX [Concomitant]

REACTIONS (7)
  - ANAEMIA [None]
  - COLITIS [None]
  - DUODENAL ULCER [None]
  - HEPATIC ENZYME INCREASED [None]
  - HYPONATRAEMIA [None]
  - OEDEMA [None]
  - VOMITING [None]
